FAERS Safety Report 7763783-9 (Version None)
Quarter: 2011Q3

REPORT INFORMATION
  Report Type: 
  Country: None (occurrence: None)
  Receive Date: 20110919
  Receipt Date: 20110909
  Transmission Date: 20111222
  Serious: Yes (Hospitalization, Other)
  Sender: FDA-Public Use
  Company Number: 7081969

PATIENT
  Age: 27 Year
  Sex: Female

DRUGS (1)
  1. LEVOTHYROXINE SODIUM [Suspect]
     Indication: THYROIDECTOMY
     Dosage: 100 MCG (100 MCG, 1 IN 1 D), ORAL
     Route: 048
     Dates: start: 20101219

REACTIONS (3)
  - GASTRITIS ATROPHIC [None]
  - HEPATIC STEATOSIS [None]
  - HEPATIC CALCIFICATION [None]
